FAERS Safety Report 8180268-9 (Version None)
Quarter: 2012Q1

REPORT INFORMATION
  Report Type: 
  Country: None (occurrence: None)
  Receive Date: 20120302
  Receipt Date: 20110831
  Transmission Date: 20120608
  Serious: No
  Sender: FDA-Public Use
  Company Number: US-GLAXOSMITHKLINE-A0943012A

PATIENT
  Age: 63 Year
  Sex: Female

DRUGS (6)
  1. SINUS MEDICATION [Concomitant]
  2. PREVACID [Concomitant]
  3. ASPIRIN [Concomitant]
  4. COZAAR [Concomitant]
  5. CLOBETASOL PROPIONATE [Suspect]
     Indication: PSORIASIS
     Route: 061
  6. PRILOSEC [Concomitant]

REACTIONS (3)
  - BURNING SENSATION [None]
  - THERMAL BURN [None]
  - PRODUCT QUALITY ISSUE [None]
